FAERS Safety Report 7459304-0 (Version None)
Quarter: 2011Q2

REPORT INFORMATION
  Report Type: 
  Country: None (occurrence: None)
  Receive Date: 20110505
  Receipt Date: 20110502
  Transmission Date: 20111010
  Serious: No
  Sender: FDA-Public Use
  Company Number: US-PFIZER INC-2011094262

PATIENT
  Sex: Female

DRUGS (2)
  1. ARTHROTEC [Suspect]
     Indication: MUSCULOSKELETAL PAIN
  2. ARTHROTEC [Suspect]
     Indication: ARTHRALGIA
     Dosage: 200UG/75MG, 2X/DAY

REACTIONS (1)
  - DRUG INEFFECTIVE [None]
